FAERS Safety Report 6612024-4 (Version None)
Quarter: 2010Q1

REPORT INFORMATION
  Report Type: 
  Country: None (occurrence: None)
  Receive Date: 20100303
  Receipt Date: 20100302
  Transmission Date: 20100710
  Serious: Yes (Hospitalization)
  Sender: FDA-Public Use
  Company Number: A0841690A

PATIENT
  Age: 70 Year
  Sex: Female

DRUGS (2)
  1. ADVAIR DISKUS 100/50 [Suspect]
     Indication: ASTHMA
     Dosage: 1PUFF TWICE PER DAY
     Route: 055
     Dates: start: 20010101
  2. UNSPECIFIED MEDICATION [Concomitant]

REACTIONS (11)
  - CARDIAC PACEMAKER INSERTION [None]
  - CEREBROVASCULAR ACCIDENT [None]
  - DECREASED APPETITE [None]
  - DIARRHOEA [None]
  - NASAL CONGESTION [None]
  - NASOPHARYNGITIS [None]
  - PANCREATIC ENZYMES INCREASED [None]
  - PANCREATITIS [None]
  - STENT PLACEMENT [None]
  - VOMITING [None]
  - WEIGHT DECREASED [None]
